FAERS Safety Report 21083789 (Version 1)
Quarter: 2022Q3

REPORT INFORMATION
  Report Type: Spontaneous
  Country: IT (occurrence: IT)
  Receive Date: 20220714
  Receipt Date: 20220714
  Transmission Date: 20221027
  Serious: No
  Sender: FDA-Public Use
  Company Number: IT-JAZZ-2022-IT-017034

PATIENT
  Sex: Female

DRUGS (1)
  1. CANNABIDIOL [Suspect]
     Active Substance: CANNABIDIOL
     Indication: Product used for unknown indication
     Dosage: 3.5 MILLILITER, BID

REACTIONS (1)
  - Diarrhoea [Unknown]
